FAERS Safety Report 14991904 (Version 2)
Quarter: 2018Q3

REPORT INFORMATION
  Report Type: Report from Study
  Country: US (occurrence: US)
  Receive Date: 20180608
  Receipt Date: 20180815
  Transmission Date: 20181010
  Serious: Yes (Hospitalization)
  Sender: FDA-Public Use
  Company Number: US-ACTELION-A-NJ2018-169032

PATIENT
  Age: 34 Year
  Sex: Male

DRUGS (1)
  1. VENTAVIS [Suspect]
     Active Substance: ILOPROST
     Indication: PORTAL HYPERTENSION
     Dosage: UNK
     Route: 055
     Dates: start: 20120109, end: 20180302

REACTIONS (2)
  - Pulmonary hypertension [Unknown]
  - Right ventricular failure [Unknown]

NARRATIVE: CASE EVENT DATE: 20180228
